FAERS Safety Report 24179346 (Version 1)
Quarter: 2024Q3

REPORT INFORMATION
  Report Type: Spontaneous
  Country: GB (occurrence: GB)
  Receive Date: 20240806
  Receipt Date: 20240806
  Transmission Date: 20241017
  Serious: Yes (Other)
  Sender: ELI LILLY AND CO
  Company Number: GB-MHRA-TPP7382473C22275880YC1721922169955

PATIENT
  Age: 26 Year
  Sex: Female
  Weight: 70 kg

DRUGS (9)
  1. DULOXETINE HYDROCHLORIDE [Suspect]
     Active Substance: DULOXETINE HYDROCHLORIDE
     Indication: Ill-defined disorder
     Dosage: UNK UNK, UNKNOWN
     Route: 048
     Dates: start: 20240701, end: 20240715
  2. PENICILLIN V [Concomitant]
     Active Substance: PENICILLIN V
     Indication: Ill-defined disorder
     Dosage: 2 DOSAGE FORM, QID (TWO TO BE TAKEN FOUR TIMES A DAY)
     Route: 065
     Dates: start: 20240426, end: 20240503
  3. DULOXETINE [Concomitant]
     Active Substance: DULOXETINE
     Indication: Ill-defined disorder
     Dosage: UNK UNK, DAILY (1 EVERY DAY AND REVIEW AFTER 3 WEEKS WITH PHARM...)
     Route: 065
     Dates: start: 20240604, end: 20240625
  4. CHOLESTYRAMINE [Concomitant]
     Active Substance: CHOLESTYRAMINE
     Indication: Ill-defined disorder
     Dosage: UNK, BID (8GM TWICE A DAY- AS PER LETTER FROM GASTRO TEAM)
     Route: 065
     Dates: start: 20240625, end: 20240725
  5. COLESEVELAM HYDROCHLORIDE [Concomitant]
     Active Substance: COLESEVELAM HYDROCHLORIDE
     Indication: Ill-defined disorder
     Dosage: UNK, BID (1 TO BE TAKEN TWICE DAILY IF TOLERATED TRY TO S...)
     Route: 065
     Dates: start: 20240725
  6. BECLOMETHASONE\FORMOTEROL [Concomitant]
     Active Substance: BECLOMETHASONE\FORMOTEROL
     Indication: Ill-defined disorder
     Dosage: UNK, BID (ONE PUFF TO BE INHALED TWICE A DAY)
     Route: 055
     Dates: start: 20210607
  7. GEDAREL [Concomitant]
     Indication: Ill-defined disorder
     Dosage: 1 DOSAGE FORM, DAILY (ONE TABLET DAILY FOR 21 DAYS; SUBSEQUENT COURSE...)
     Route: 065
     Dates: start: 20220606, end: 20240604
  8. AMITRIPTYLINE HYDROCHLORIDE [Concomitant]
     Active Substance: AMITRIPTYLINE HYDROCHLORIDE
     Indication: Ill-defined disorder
     Dosage: 3 DOSAGE FORM (3 AT NIGHT), UNKNOWN
     Route: 065
     Dates: start: 20221020, end: 20240604
  9. ALBUTEROL [Concomitant]
     Active Substance: ALBUTEROL
     Indication: Ill-defined disorder
     Dosage: UNK, PRN (2 PUFS AS REQUIRED)
     Route: 065
     Dates: start: 20231219

REACTIONS (1)
  - Delirium [Recovered/Resolved]

NARRATIVE: CASE EVENT DATE: 20240701
